FAERS Safety Report 23589638 (Version 1)
Quarter: 2024Q1

REPORT INFORMATION
  Report Type: Spontaneous
  Country: FR (occurrence: FR)
  Receive Date: 20240304
  Receipt Date: 20240304
  Transmission Date: 20240410
  Serious: Yes (Hospitalization, Other)
  Sender: FDA-Public Use
  Company Number: FR-009507513-2402FRA009306

PATIENT
  Sex: Male

DRUGS (1)
  1. PIFELTRO [Suspect]
     Active Substance: DORAVIRINE
     Route: 048

REACTIONS (2)
  - Maxillofacial operation [Unknown]
  - Dysphagia [Unknown]
